FAERS Safety Report 13400462 (Version 3)
Quarter: 2018Q2

REPORT INFORMATION
  Report Type: Spontaneous
  Country: US (occurrence: US)
  Receive Date: 20170404
  Receipt Date: 20180620
  Transmission Date: 20180711
  Serious: Yes (Hospitalization, Other)
  Sender: FDA-Public Use
  Company Number: US-TEVA-755526USA

PATIENT
  Age: 69 Year
  Sex: Male

DRUGS (7)
  1. FLUOXETINE [Suspect]
     Active Substance: FLUOXETINE HYDROCHLORIDE
     Route: 065
  2. CIPROFLOXACIN. [Suspect]
     Active Substance: CIPROFLOXACIN
     Route: 065
  3. AMIODARONE [Interacting]
     Active Substance: AMIODARONE
     Route: 065
  4. OLANZAPINE. [Suspect]
     Active Substance: OLANZAPINE
     Indication: DELIRIUM
     Route: 065
  5. FLUPHENAZINE [Interacting]
     Active Substance: FLUPHENAZINE
     Route: 065
  6. ROPINIROLE EXTENDED RELEASE [Suspect]
     Active Substance: ROPINIROLE
     Route: 065
  7. DIPHENHYDRAMINE. [Suspect]
     Active Substance: DIPHENHYDRAMINE
     Route: 065

REACTIONS (2)
  - Torsade de pointes [Unknown]
  - Drug interaction [Unknown]
